FAERS Safety Report 24594069 (Version 1)
Quarter: 2024Q4

REPORT INFORMATION
  Report Type: Report from Study
  Country: CA (occurrence: CA)
  Receive Date: 20241108
  Receipt Date: 20241108
  Transmission Date: 20250115
  Serious: Yes (Other)
  Sender: RANBAXY
  Company Number: CA-SUN PHARMACEUTICAL INDUSTRIES LTD-2024R1-477841

PATIENT
  Age: 58 Year
  Sex: Female

DRUGS (6)
  1. CETIRIZINE [Suspect]
     Active Substance: CETIRIZINE HYDROCHLORIDE
     Indication: Chronic spontaneous urticaria
     Dosage: 80 MILLIGRAM, DAILY
     Route: 065
  2. MONTELUKAST [Suspect]
     Active Substance: MONTELUKAST
     Indication: Chronic spontaneous urticaria
     Dosage: 10 MILLIGRAM, DAILY
     Route: 065
  3. PREDNISONE [Suspect]
     Active Substance: PREDNISONE
     Indication: Chronic spontaneous urticaria
     Dosage: 1 MILLIGRAM/KILOGRAM
     Route: 065
  4. RUPATADINE [Suspect]
     Active Substance: RUPATADINE
     Indication: Chronic spontaneous urticaria
     Dosage: 80 MILLIGRAM, DAILY
     Route: 065
  5. CYCLOSPORINE [Suspect]
     Active Substance: CYCLOSPORINE
     Indication: Chronic spontaneous urticaria
     Dosage: 1- 3 MG/KG
     Route: 065
  6. OMALIZUMAB [Suspect]
     Active Substance: OMALIZUMAB
     Indication: Chronic spontaneous urticaria
     Dosage: 600 MILLIGRAM/ EVERY 4 WEEKS
     Route: 065

REACTIONS (1)
  - Treatment failure [Unknown]
